FAERS Safety Report 17261018 (Version 5)
Quarter: 2020Q1

REPORT INFORMATION
  Report Type: Spontaneous
  Country: US (occurrence: US)
  Receive Date: 20200113
  Receipt Date: 20200313
  Transmission Date: 20200409
  Serious: No
  Sender: FDA-Public Use
  Company Number: US-GLAXOSMITHKLINE-US2020AMR003128

PATIENT
  Sex: Female

DRUGS (1)
  1. FLOVENT HFA [Suspect]
     Active Substance: FLUTICASONE PROPIONATE
     Indication: PRODUCT USED FOR UNKNOWN INDICATION
     Dosage: UNK
     Route: 065

REACTIONS (10)
  - Cough [Unknown]
  - Product complaint [Unknown]
  - Pharyngeal erythema [Unknown]
  - Respiratory disorder [Unknown]
  - Language disorder [Unknown]
  - Respiratory tract congestion [Unknown]
  - Oropharyngeal pain [Unknown]
  - Tonsillar hypertrophy [Unknown]
  - Dry throat [Unknown]
  - Wrong technique in device usage process [Unknown]
